FAERS Safety Report 10873901 (Version 1)
Quarter: 2015Q1

REPORT INFORMATION
  Report Type: Spontaneous
  Country: US (occurrence: None)
  Receive Date: 20150224
  Receipt Date: 20150224
  Transmission Date: 20150721
  Serious: Yes (Hospitalization)
  Sender: FDA-Public Use
  Company Number: US-ZYDUS-006751

PATIENT
  Age: 48 Year
  Sex: Male

DRUGS (2)
  1. TOPIRAMATE (TOPIRAMATE) [Concomitant]
     Active Substance: TOPIRAMATE
  2. LAMOTRIGINE (LAMOTRIGINE) [Suspect]
     Active Substance: LAMOTRIGINE

REACTIONS (6)
  - Exposure via ingestion [None]
  - Accidental overdose [None]
  - Ataxia [None]
  - Muscular weakness [None]
  - Toxicity to various agents [None]
  - Confusional state [None]
